FAERS Safety Report 11032394 (Version 1)
Quarter: 2015Q2

REPORT INFORMATION
  Report Type: Spontaneous
  Country: US (occurrence: None)
  Receive Date: 20150414
  Receipt Date: 20150414
  Transmission Date: 20150821
  Serious: Yes (Death)
  Sender: FDA-Public Use
  Company Number: 2015BV000005

PATIENT
  Age: 21 Year
  Sex: Female

DRUGS (9)
  1. MEPROBAMATE. [Concomitant]
     Active Substance: MEPROBAMATE
  2. HYDROXYZINE [Concomitant]
     Active Substance: HYDROXYZINE\HYDROXYZINE HYDROCHLORIDE
  3. SUMATRIPTAN. [Suspect]
     Active Substance: SUMATRIPTAN
  4. CARISOPRODOL. [Concomitant]
     Active Substance: CARISOPRODOL
  5. FLUOXETINE [Concomitant]
     Active Substance: FLUOXETINE\FLUOXETINE HYDROCHLORIDE
  6. DOXYLAMINE [Concomitant]
     Active Substance: DOXYLAMINE
  7. ORPHENADRINE [Concomitant]
     Active Substance: ORPHENADRINE
  8. CARBAMAZEPINE. [Concomitant]
     Active Substance: CARBAMAZEPINE
  9. DEXTROMETHORPHAN [Concomitant]
     Active Substance: DEXTROMETHORPHAN

REACTIONS (5)
  - Toxicity to various agents [None]
  - Drug level increased [None]
  - Unresponsive to stimuli [None]
  - Vomiting [None]
  - Accidental death [None]
